FAERS Safety Report 8186487-X (Version None)
Quarter: 2012Q1

REPORT INFORMATION
  Report Type: 
  Country: None (occurrence: None)
  Receive Date: 20120302
  Receipt Date: 20120302
  Transmission Date: 20120608
  Serious: Yes (Life-Threatening)
  Sender: FDA-Public Use
  Company Number: None

PATIENT
  Sex: Male
  Weight: 90.9 kg

DRUGS (7)
  1. LANACANE [Suspect]
     Indication: PRURITUS
     Dosage: 2X/DAY 061 TRANSDERMAL
     Route: 062
  2. ATENOLOL [Concomitant]
  3. LISINOPRIL [Concomitant]
  4. GABAPENTIN [Concomitant]
  5. COUMADIN [Concomitant]
  6. CRESTOR [Concomitant]
  7. FLOMAX [Concomitant]

REACTIONS (4)
  - PRODUCT QUALITY ISSUE [None]
  - METHAEMOGLOBINAEMIA [None]
  - DEPRESSION [None]
  - LETHARGY [None]
